FAERS Safety Report 7806556-0 (Version None)
Quarter: 2011Q4

REPORT INFORMATION
  Report Type: 
  Country: None (occurrence: None)
  Receive Date: 20111011
  Receipt Date: 20110926
  Transmission Date: 20120403
  Serious: Yes (Other)
  Sender: FDA-Public Use
  Company Number: US-TYCO HEALTHCARE/MALLINCKRODT-T201101535

PATIENT
  Sex: Male

DRUGS (2)
  1. OPTIRAY 160 [Suspect]
     Indication: AORTIC ANEURYSM
     Dosage: 125 ML, SINGLE
     Route: 042
     Dates: start: 20110804, end: 20110804
  2. OPTIRAY 160 [Suspect]
     Indication: MEDIASTINAL DISORDER

REACTIONS (5)
  - LOSS OF CONSCIOUSNESS [None]
  - HYPERHIDROSIS [None]
  - DIZZINESS [None]
  - PRURITUS [None]
  - URTICARIA [None]
